FAERS Safety Report 5370387-4 (Version None)
Quarter: 2007Q2

REPORT INFORMATION
  Report Type: 
  Country: None (occurrence: None)
  Receive Date: 20070625
  Receipt Date: 20070625
  Transmission Date: 20071010
  Serious: Yes (Life-Threatening, Hospitalization)
  Sender: FDA-Public Use
  Company Number: None

PATIENT
  Sex: Male
  Weight: 72 kg

DRUGS (3)
  1. EPTIFIBATIDE 2MCG/KG/MIN [Suspect]
     Indication: ACUTE CORONARY SYNDROME
     Dosage: 2MCG/KG/HR (IV)
     Route: 042
  2. EPTIFIBATIDE 2MCG/KG/MIN [Suspect]
     Indication: STENT PLACEMENT
     Dosage: 2MCG/KG/HR (IV)
     Route: 042
  3. ASPIRIN [Suspect]
     Indication: CORONARY ARTERY DISEASE
     Dosage: 81MG PO DAILY
     Route: 048
     Dates: start: 20060522

REACTIONS (1)
  - LOWER GASTROINTESTINAL HAEMORRHAGE [None]
